FAERS Safety Report 6854911-8 (Version None)
Quarter: 2010Q3

REPORT INFORMATION
  Report Type: 
  Country: None (occurrence: None)
  Receive Date: 20100717
  Receipt Date: 20080310
  Transmission Date: 20110219
  Serious: No
  Sender: FDA-Public Use
  Company Number: US-PFIZER INC-2008004527

PATIENT
  Sex: Female
  Weight: 75 kg

DRUGS (3)
  1. CHANTIX [Suspect]
     Indication: SMOKING CESSATION THERAPY
     Dates: start: 20070101
  2. IBUPROFEN [Suspect]
     Dates: start: 20071017
  3. ACETAMINOPHEN [Concomitant]

REACTIONS (4)
  - ABDOMINAL DISCOMFORT [None]
  - DRUG DOSE OMISSION [None]
  - NASOPHARYNGITIS [None]
  - NAUSEA [None]
